FAERS Safety Report 19875129 (Version 1)
Quarter: 2021Q3

REPORT INFORMATION
  Report Type: Report from Study
  Country: IL (occurrence: IL)
  Receive Date: 20210923
  Receipt Date: 20210923
  Transmission Date: 20211014
  Serious: Yes (Hospitalization)
  Sender: FDA-Public Use
  Company Number: IL-CELGENEUS-ISR-20210904301

PATIENT
  Age: 42 Year
  Sex: Male
  Weight: 65.6 kg

DRUGS (4)
  1. DARATUMUMAB [Suspect]
     Active Substance: DARATUMUMAB
     Indication: PLASMA CELL MYELOMA RECURRENT
     Dosage: 1800 MILLIGRAM
     Route: 058
     Dates: start: 20200924, end: 20200924
  2. POMALIDOMIDE [Suspect]
     Active Substance: POMALIDOMIDE
     Indication: PLASMA CELL MYELOMA RECURRENT
     Dosage: 4 MILLIGRAM
     Route: 048
     Dates: start: 20200924, end: 20200924
  3. POMALIDOMIDE [Suspect]
     Active Substance: POMALIDOMIDE
     Dosage: 4 MILLIGRAM
     Route: 048
     Dates: start: 20200926
  4. DEXAMETHASONE. [Suspect]
     Active Substance: DEXAMETHASONE
     Indication: CHEMOTHERAPY
     Dosage: 20 MILLIGRAM
     Route: 048
     Dates: start: 20200924, end: 20200925

REACTIONS (1)
  - Hypophosphataemia [Recovered/Resolved with Sequelae]

NARRATIVE: CASE EVENT DATE: 20200925
